FAERS Safety Report 5928520-9 (Version None)
Quarter: 2008Q4

REPORT INFORMATION
  Report Type: 
  Country: None (occurrence: None)
  Receive Date: 20081023
  Receipt Date: 20081016
  Transmission Date: 20090506
  Serious: Yes (Hospitalization)
  Sender: FDA-Public Use
  Company Number: US-ELI_LILLY_AND_COMPANY-US200810004174

PATIENT
  Sex: Female
  Weight: 108.39 kg

DRUGS (7)
  1. BYETTA [Suspect]
     Indication: DIABETES MELLITUS
     Dosage: 5 UG, 2/D
     Route: 058
     Dates: start: 20070101, end: 20080501
  2. BYETTA [Suspect]
     Dosage: 10 UG, 2/D
     Route: 058
     Dates: start: 20080501, end: 20081014
  3. LEVEMIR [Concomitant]
     Indication: DIABETES MELLITUS
     Dosage: 100 U, EACH MORNING
     Dates: end: 20070101
  4. LEVEMIR [Concomitant]
     Dosage: 70 U, EACH EVENING
     Dates: end: 20070101
  5. LEVEMIR [Concomitant]
     Dosage: 60 U, EACH EVENING
     Dates: start: 20070101
  6. PLAVIX [Concomitant]
     Indication: CARDIAC DISORDER
  7. ANTIHYPERTENSIVES [Concomitant]
     Indication: BLOOD PRESSURE

REACTIONS (5)
  - BLOOD GLUCOSE INCREASED [None]
  - BREAST CANCER [None]
  - IMPAIRED HEALING [None]
  - VISUAL ACUITY REDUCED [None]
  - WEIGHT DECREASED [None]
